FAERS Safety Report 7731366-2 (Version None)
Quarter: 2011Q3

REPORT INFORMATION
  Report Type: 
  Country: None (occurrence: None)
  Receive Date: 20110906
  Receipt Date: 20110627
  Transmission Date: 20111222
  Serious: No
  Sender: FDA-Public Use
  Company Number: US-AMGEN-USASP2011032673

PATIENT
  Age: 82 Year
  Sex: Female
  Weight: 54.422 kg

DRUGS (19)
  1. XYZAL [Concomitant]
     Indication: HYPERSENSITIVITY
  2. COQ10 [Concomitant]
  3. CELL PROTECTOR [Concomitant]
  4. VITAMIN D [Concomitant]
  5. VITAMIN C                          /00008001/ [Concomitant]
  6. BIOTIN [Concomitant]
  7. NEXIUM [Concomitant]
     Indication: GASTRIC DISORDER
     Dosage: 1 MG, QD
  8. CLONAZEPAM [Concomitant]
     Indication: NEUROPATHY PERIPHERAL
     Dosage: 1 MG, QD
  9. B12                                /00056201/ [Concomitant]
  10. FISH OIL [Concomitant]
  11. ARTHRO [Concomitant]
  12. LUTEIN                             /01638501/ [Concomitant]
  13. B6 [Concomitant]
  14. MAGNESIUM [Concomitant]
  15. LIQUID CALCIUM                     /00751501/ [Concomitant]
  16. FLEXAMIN [Concomitant]
  17. LICORICE                           /01125801/ [Concomitant]
     Dates: start: 20110101, end: 20110101
  18. PROLIA [Suspect]
     Indication: OSTEOPOROSIS POSTMENOPAUSAL
     Dosage: 60 MG, Q6MO
     Dates: start: 20110426
  19. HYDROCHLOROTHIAZIDE [Concomitant]
     Indication: BLOOD CALCIUM DECREASED
     Dosage: 1 MG, QD

REACTIONS (5)
  - ABDOMINAL DISCOMFORT [None]
  - HEADACHE [None]
  - MUSCULOSKELETAL STIFFNESS [None]
  - ASTHENIA [None]
  - ARTHRALGIA [None]
